FAERS Safety Report 6811121-8 (Version None)
Quarter: 2010Q2

REPORT INFORMATION
  Report Type: 
  Country: None (occurrence: None)
  Receive Date: 20100630
  Receipt Date: 20090508
  Transmission Date: 20101027
  Serious: No
  Sender: FDA-Public Use
  Company Number: US-PFIZER INC-2009188089

PATIENT
  Sex: Female

DRUGS (2)
  1. NICOTROL [Suspect]
     Dates: start: 20090101
  2. NICOTINE [Suspect]
     Dosage: 21 MG, UNK
     Route: 062

REACTIONS (2)
  - DRUG EFFECT DECREASED [None]
  - SCRATCH [None]
